FAERS Safety Report 10953691 (Version 1)
Quarter: 2015Q1

REPORT INFORMATION
  Report Type: Spontaneous
  Country: US (occurrence: US)
  Receive Date: 20150325
  Receipt Date: 20150325
  Transmission Date: 20150721
  Serious: Yes (Death)
  Sender: FDA-Public Use
  Company Number: US-CIPLA LTD.-2015US02397

PATIENT

DRUGS (10)
  1. ETHANOL [Suspect]
     Active Substance: ALCOHOL
  2. BUSPIRONE [Suspect]
     Active Substance: BUSPIRONE HYDROCHLORIDE
  3. CLONAZEPAM. [Suspect]
     Active Substance: CLONAZEPAM
  4. ZOLPIDEM TARTARATE [Suspect]
     Active Substance: ZOLPIDEM TARTRATE
  5. LAMOTRIGINE. [Suspect]
     Active Substance: LAMOTRIGINE
  6. FLUOXETINE [Suspect]
     Active Substance: FLUOXETINE\FLUOXETINE HYDROCHLORIDE
  7. COCAINE [Suspect]
     Active Substance: COCAINE
  8. OMEPRAZOLE. [Suspect]
     Active Substance: OMEPRAZOLE
  9. TRAZODONE [Suspect]
     Active Substance: TRAZODONE HYDROCHLORIDE
  10. AMPHETAMINE [Suspect]
     Active Substance: AMPHETAMINE

REACTIONS (1)
  - Completed suicide [Fatal]
